FAERS Safety Report 14091461 (Version 2)
Quarter: 2017Q4

REPORT INFORMATION
  Report Type: Spontaneous
  Country: JP (occurrence: JP)
  Receive Date: 20171016
  Receipt Date: 20171017
  Transmission Date: 20180321
  Serious: Yes (Hospitalization)
  Sender: FDA-Public Use
  Company Number: JP-ROCHE-2007113

PATIENT
  Age: 68 Year
  Sex: Female

DRUGS (2)
  1. PREDNISOLONE. [Concomitant]
     Active Substance: PREDNISOLONE
     Dosage: DOSAGE IS UNCERTAIN.
     Route: 065
  2. ACTEMRA [Suspect]
     Active Substance: TOCILIZUMAB
     Indication: RHEUMATOID ARTHRITIS
     Dosage: DOSAGE IS UNCERTAIN.
     Route: 041

REACTIONS (7)
  - Device related infection [Unknown]
  - Procedural haemorrhage [Unknown]
  - Subcutaneous abscess [Unknown]
  - Shock [Unknown]
  - Coagulation factor XIII level decreased [Unknown]
  - Blood fibrinogen decreased [Recovered/Resolved]
  - Wound dehiscence [Unknown]
